FAERS Safety Report 21713378 (Version 3)
Quarter: 2023Q1

REPORT INFORMATION
  Report Type: Spontaneous
  Country: US (occurrence: US)
  Receive Date: 20221212
  Receipt Date: 20230113
  Transmission Date: 20230417
  Serious: Yes (Other)
  Sender: FDA-Public Use
  Company Number: US-BAYER-2022A169566

PATIENT
  Age: 21 Year
  Sex: Male

DRUGS (4)
  1. KOGENATE FS [Suspect]
     Active Substance: ANTIHEMOPHILIC FACTOR, HUMAN RECOMBINANT
     Dosage: 2000 U, UNK
     Route: 042
  2. KOGENATE FS [Suspect]
     Active Substance: ANTIHEMOPHILIC FACTOR, HUMAN RECOMBINANT
     Dosage: 2 DF, ONCE (TO TREAT THE BLEED)
     Route: 042
     Dates: start: 20221130
  3. KOGENATE FS [Suspect]
     Active Substance: ANTIHEMOPHILIC FACTOR, HUMAN RECOMBINANT
     Dosage: 1 DF, QD FOR TOE BLEED TREATMENT
  4. KOGENATE FS [Suspect]
     Active Substance: ANTIHEMOPHILIC FACTOR, HUMAN RECOMBINANT
     Dosage: 1 DF, QOD FOR TOE BLEED TREATMENT

REACTIONS (4)
  - Haemorrhage [Not Recovered/Not Resolved]
  - Headache [None]
  - Ear infection [None]
  - Sinusitis [None]

NARRATIVE: CASE EVENT DATE: 20221130
